FAERS Safety Report 9445463 (Version 3)
Quarter: 2014Q1

REPORT INFORMATION
  Report Type: Spontaneous
  Country: JP (occurrence: JP)
  Receive Date: 20130807
  Receipt Date: 20140206
  Transmission Date: 20141002
  Serious: Yes (Life-Threatening, Hospitalization, Other)
  Sender: FDA-Public Use
  Company Number: JP-PFIZER INC-2013225367

PATIENT
  Age: 21 Year
  Sex: Female

DRUGS (3)
  1. AMLODIPINE BESILATE [Suspect]
     Dosage: UNK
     Route: 048
  2. CARVEDILOL [Suspect]
     Dosage: UNK
     Route: 048
  3. BISOPROLOL [Suspect]
     Dosage: UNK
     Route: 048

REACTIONS (6)
  - Intentional overdose [Unknown]
  - Shock [Recovered/Resolved]
  - Respiratory failure [Recovered/Resolved]
  - Hypotension [Unknown]
  - Sinus bradycardia [Unknown]
  - Depressed level of consciousness [Unknown]
